FAERS Safety Report 4718648-3 (Version None)
Quarter: 2005Q3

REPORT INFORMATION
  Report Type: 
  Country: None (occurrence: None)
  Receive Date: 20050720
  Receipt Date: 20050715
  Transmission Date: 20060218
  Serious: Yes (Other)
  Sender: FDA-Public Use
  Company Number: 2005013757

PATIENT
  Age: 55 Year
  Sex: Male
  Weight: 113 kg

DRUGS (2)
  1. AVANDAMET [Suspect]
     Dosage: 50TAB SINGLE DOSE
     Route: 048
  2. ALCOHOL [Suspect]
     Route: 048

REACTIONS (4)
  - DIARRHOEA [None]
  - OVERDOSE [None]
  - SUICIDE ATTEMPT [None]
  - VOMITING [None]
